FAERS Safety Report 9533923 (Version 1)
Quarter: 2013Q2

REPORT INFORMATION
  Report Type: Spontaneous
  Country: US (occurrence: None)
  Receive Date: 20130423
  Receipt Date: 20130423
  Transmission Date: 20140414
  Serious: Yes (Other)
  Sender: FDA-Public Use
  Company Number: 1212USA001093

PATIENT
  Sex: Female

DRUGS (2)
  1. TEMODAR (TEMOZOLOMIDE) CAPSULE [Suspect]
     Route: 048
  2. KEPPRA (LEVETIRACETAM) [Concomitant]

REACTIONS (1)
  - Pancytopenia [None]
